FAERS Safety Report 4416576-4 (Version None)
Quarter: 2004Q3

REPORT INFORMATION
  Report Type: 
  Country: None (occurrence: None)
  Receive Date: 20040802
  Receipt Date: 20040721
  Transmission Date: 20050211
  Serious: Yes (Hospitalization)
  Sender: FDA-Public Use
  Company Number: GB-JNJFOC-20040705720

PATIENT
  Age: 40 Year
  Sex: Female
  Weight: 43 kg

DRUGS (7)
  1. REMICADE [Suspect]
     Indication: RHEUMATOID ARTHRITIS
     Dosage: 5 MG/KG, INTRAVENOUS
     Route: 042
     Dates: start: 20040201, end: 20040601
  2. PREDNISOLONE [Concomitant]
  3. METHOTREXATE [Concomitant]
  4. FOSAMAX [Concomitant]
  5. ALENDRONIC ACID   (ALENDRONIC ACID) [Concomitant]
  6. CO-PROXAMOL     (APOREX) [Concomitant]
  7. NABUMETONE [Concomitant]

REACTIONS (1)
  - RHEUMATOID ARTHRITIS [None]
